FAERS Safety Report 24870505 (Version 3)
Quarter: 2025Q1

REPORT INFORMATION
  Report Type: Spontaneous
  Country: JP (occurrence: JP)
  Receive Date: 20250121
  Receipt Date: 20250205
  Transmission Date: 20250408
  Serious: Yes (Other)
  Sender: JOHNSON AND JOHNSON
  Company Number: JP-MTPC-MTPC2025-0000831

PATIENT
  Age: 2 Decade
  Sex: Male

DRUGS (21)
  1. REMICADE [Suspect]
     Active Substance: INFLIXIMAB
     Indication: Crohn^s disease
     Dosage: 5 MILLIGRAM/KILOGRAM, QD
     Route: 041
  2. REMICADE [Suspect]
     Active Substance: INFLIXIMAB
     Dosage: 5 MILLIGRAM/KILOGRAM, QD
     Route: 041
  3. REMICADE [Suspect]
     Active Substance: INFLIXIMAB
     Dosage: 5 MILLIGRAM/KILOGRAM, QD
     Route: 041
  4. STELARA [Suspect]
     Active Substance: USTEKINUMAB
     Indication: Crohn^s disease
     Route: 042
  5. STELARA [Suspect]
     Active Substance: USTEKINUMAB
     Dosage: 90 MILLIGRAM, Q8WEEKS
     Route: 058
  6. PENTASA [Concomitant]
     Active Substance: MESALAMINE
     Indication: Product used for unknown indication
     Route: 065
  7. PREDNISOLONE [Concomitant]
     Active Substance: PREDNISOLONE
     Indication: Product used for unknown indication
     Route: 065
  8. AZATHIOPRINE [Concomitant]
     Active Substance: AZATHIOPRINE
     Indication: Product used for unknown indication
     Route: 065
  9. AZATHIOPRINE [Concomitant]
     Active Substance: AZATHIOPRINE
     Route: 065
  10. AZATHIOPRINE [Concomitant]
     Active Substance: AZATHIOPRINE
     Route: 065
  11. AZATHIOPRINE [Concomitant]
     Active Substance: AZATHIOPRINE
     Route: 065
  12. AZATHIOPRINE [Concomitant]
     Active Substance: AZATHIOPRINE
     Route: 065
  13. AZATHIOPRINE [Concomitant]
     Active Substance: AZATHIOPRINE
     Route: 065
  14. ADALIMUMAB [Concomitant]
     Active Substance: ADALIMUMAB
     Indication: Product used for unknown indication
     Route: 065
  15. ADALIMUMAB [Concomitant]
     Active Substance: ADALIMUMAB
     Route: 065
  16. VEDOLIZUMAB [Concomitant]
     Active Substance: VEDOLIZUMAB
     Indication: Product used for unknown indication
     Route: 065
  17. UPADACITINIB [Concomitant]
     Active Substance: UPADACITINIB
     Indication: Product used for unknown indication
     Route: 065
  18. UPADACITINIB [Concomitant]
     Active Substance: UPADACITINIB
     Route: 065
  19. UPADACITINIB [Concomitant]
     Active Substance: UPADACITINIB
     Route: 065
  20. RISANKIZUMAB [Concomitant]
     Active Substance: RISANKIZUMAB
     Indication: Product used for unknown indication
     Route: 042
  21. RISANKIZUMAB [Concomitant]
     Active Substance: RISANKIZUMAB
     Dosage: 360 MILLIGRAM, Q8WEEKS
     Route: 058

REACTIONS (2)
  - Large intestinal stenosis [Unknown]
  - Therapeutic product effect decreased [Unknown]
